FAERS Safety Report 6999339-5 (Version None)
Quarter: 2010Q3

REPORT INFORMATION
  Report Type: 
  Country: None (occurrence: None)
  Receive Date: 20100920
  Receipt Date: 20100115
  Transmission Date: 20110219
  Serious: Yes (Other)
  Sender: FDA-Public Use
  Company Number: US-ASTRAZENECA-2007UW22215

PATIENT
  Age: 34 Year
  Sex: Male
  Weight: 95.3 kg

DRUGS (21)
  1. SEROQUEL [Suspect]
     Indication: BIPOLAR DISORDER
     Dosage: 100 TO 300 MG DAILY
     Route: 048
     Dates: start: 20051104
  2. SEROQUEL [Suspect]
     Indication: SCHIZOAFFECTIVE DISORDER
     Dosage: 100 TO 300 MG DAILY
     Route: 048
     Dates: start: 20051104
  3. SEROQUEL [Suspect]
     Indication: DEPRESSION
     Dosage: 100 TO 300 MG DAILY
     Route: 048
     Dates: start: 20051104
  4. SEROQUEL [Suspect]
     Indication: SCHIZOPHRENIA
     Dosage: 100 TO 300 MG DAILY
     Route: 048
     Dates: start: 20051104
  5. SEROQUEL [Suspect]
     Route: 048
     Dates: start: 20050101
  6. SEROQUEL [Suspect]
     Route: 048
     Dates: start: 20050101
  7. SEROQUEL [Suspect]
     Route: 048
     Dates: start: 20050101
  8. SEROQUEL [Suspect]
     Route: 048
     Dates: start: 20050101
  9. GLUCOPHAGE [Concomitant]
  10. WELLBUTRIN [Concomitant]
  11. RISPERDAL [Concomitant]
     Dates: start: 20050101
  12. ZYPREXA [Concomitant]
     Indication: SCHIZOPHRENIA
     Dosage: 10 TO 20 MG DAILY
     Route: 048
     Dates: start: 20051104
  13. ZYPREXA [Concomitant]
     Indication: BIPOLAR DISORDER
     Dosage: 10 TO 20 MG DAILY
     Route: 048
     Dates: start: 20051104
  14. ZYPREXA [Concomitant]
     Indication: DEPRESSION
     Dosage: 10 TO 20 MG DAILY
     Route: 048
     Dates: start: 20051104
  15. PROZAC [Concomitant]
     Dates: start: 20060101
  16. ZOLOFT [Concomitant]
     Indication: SCHIZOPHRENIA
     Dosage: 50 TO 150 MG DAILY
     Route: 048
     Dates: start: 20051104
  17. ZOLOFT [Concomitant]
     Indication: BIPOLAR DISORDER
     Dosage: 50 TO 150 MG DAILY
     Route: 048
     Dates: start: 20051104
  18. ZOLOFT [Concomitant]
     Indication: DEPRESSION
     Dosage: 50 TO 150 MG DAILY
     Route: 048
     Dates: start: 20051104
  19. REMERON [Concomitant]
     Indication: SCHIZOPHRENIA
     Route: 048
     Dates: start: 20051104
  20. REMERON [Concomitant]
     Indication: BIPOLAR DISORDER
     Route: 048
     Dates: start: 20051104
  21. REMERON [Concomitant]
     Indication: DEPRESSION
     Route: 048
     Dates: start: 20051104

REACTIONS (8)
  - ABDOMINAL PAIN [None]
  - HYPERTENSION [None]
  - HYPOGLYCAEMIA [None]
  - OBESITY [None]
  - PANCREATITIS [None]
  - PANCREATITIS ACUTE [None]
  - TYPE 2 DIABETES MELLITUS [None]
  - VISION BLURRED [None]
